FAERS Safety Report 23557881 (Version 4)
Quarter: 2024Q2

REPORT INFORMATION
  Report Type: Spontaneous
  Country: US (occurrence: None)
  Receive Date: 20240223
  Receipt Date: 20240515
  Transmission Date: 20240715
  Serious: No
  Sender: FDA-Public Use
  Company Number: 2024A043197

PATIENT
  Age: 72 Year
  Sex: Female

DRUGS (2)
  1. SYMBICORT [Suspect]
     Active Substance: BUDESONIDE\FORMOTEROL FUMARATE DIHYDRATE
     Indication: Asthma
     Dosage: UNKNOWN
     Route: 055
     Dates: start: 20231220, end: 20240314
  2. SYMBICORT [Suspect]
     Active Substance: BUDESONIDE\FORMOTEROL FUMARATE DIHYDRATE
     Indication: Asthma
     Dosage: 160 UG, UNKNOWN UNKNOWN
     Route: 055
     Dates: start: 20231221

REACTIONS (10)
  - Laryngitis [Unknown]
  - Candida infection [Recovered/Resolved]
  - Obsessive-compulsive disorder [Unknown]
  - Confusional state [Unknown]
  - Muscle spasms [Unknown]
  - Blood potassium decreased [Unknown]
  - Muscle spasms [Unknown]
  - Dysphonia [Recovering/Resolving]
  - Device physical property issue [Unknown]
  - Wrong technique in device usage process [Unknown]

NARRATIVE: CASE EVENT DATE: 20230219
